FAERS Safety Report 7777500-X (Version None)
Quarter: 2011Q3

REPORT INFORMATION
  Report Type: 
  Country: None (occurrence: None)
  Receive Date: 20110926
  Receipt Date: 20110922
  Transmission Date: 20111222
  Serious: Yes (Hospitalization)
  Sender: FDA-Public Use
  Company Number: IT-PFIZER INC-2011225413

PATIENT
  Age: 39 Year
  Sex: Male

DRUGS (5)
  1. HALDOL [Suspect]
     Dosage: 30 ML, SINGLE
     Route: 048
     Dates: start: 20110715, end: 20110715
  2. PALIPERIDONE [Suspect]
     Dosage: 42 MG, SINGLE
     Route: 048
     Dates: start: 20110715, end: 20110715
  3. AMITRIPTYLINE HCL [Suspect]
     Dosage: 20 ML, SINGLE
     Route: 048
     Dates: start: 20110715, end: 20110715
  4. LEXOTAN [Suspect]
     Dosage: 20 ML, SINGLE
     Route: 048
     Dates: start: 20110715, end: 20110715
  5. XANAX [Suspect]
     Dosage: 3.5 MG, SINGLE
     Route: 048
     Dates: start: 20110715, end: 20110715

REACTIONS (3)
  - SPEECH DISORDER [None]
  - SOPOR [None]
  - SUICIDE ATTEMPT [None]
